FAERS Safety Report 23332695 (Version 1)
Quarter: 2023Q4

REPORT INFORMATION
  Report Type: Spontaneous
  Country: US (occurrence: None)
  Receive Date: 20231222
  Receipt Date: 20231222
  Transmission Date: 20240110
  Serious: Yes (Life-Threatening, Other)
  Sender: FDA-Public Use
  Company Number: None

PATIENT
  Age: 59 Year
  Sex: Female
  Weight: 57.15 kg

DRUGS (13)
  1. LYRICA [Suspect]
     Active Substance: PREGABALIN
     Indication: Migraine
     Dosage: OTHER QUANTITY : 1 CAPSULE(S);?FREQUENCY : TWICE A DAY;?
     Route: 048
  2. GABAPENTIN [Concomitant]
     Active Substance: GABAPENTIN
  3. DULOXETINE [Concomitant]
     Active Substance: DULOXETINE
  4. PRILOSEC [Concomitant]
     Active Substance: OMEPRAZOLE MAGNESIUM
  5. VALIUM [Concomitant]
     Active Substance: DIAZEPAM
  6. TRAZODONE [Concomitant]
     Active Substance: TRAZODONE HYDROCHLORIDE
  7. MIRTAZAPINE [Concomitant]
     Active Substance: MIRTAZAPINE
  8. SIMVASTATIN [Concomitant]
     Active Substance: SIMVASTATIN
  9. CALCIUM [Concomitant]
     Active Substance: CALCIUM
  10. FISH OIL [Concomitant]
     Active Substance: FISH OIL
  11. BIOTIN [Concomitant]
     Active Substance: BIOTIN
  12. multi vitamin women over 50+ [Concomitant]
  13. magnesium b-12 [Concomitant]

REACTIONS (16)
  - Thinking abnormal [None]
  - Irritability [None]
  - Aggression [None]
  - Insomnia [None]
  - Anger [None]
  - Amnesia [None]
  - Visual impairment [None]
  - Anxiety [None]
  - Constipation [None]
  - Weight increased [None]
  - Coordination abnormal [None]
  - Heart rate increased [None]
  - Thinking abnormal [None]
  - Feelings of worthlessness [None]
  - Feeling jittery [None]
  - Tremor [None]

NARRATIVE: CASE EVENT DATE: 20230612
